FAERS Safety Report 23437597 (Version 2)
Quarter: 2024Q3

REPORT INFORMATION
  Report Type: Spontaneous
  Country: DK (occurrence: DK)
  Receive Date: 20240124
  Receipt Date: 20240730
  Transmission Date: 20241016
  Serious: Yes (Other)
  Sender: TAKEDA
  Company Number: DK-BEH-2024167411

PATIENT
  Age: 81 Year
  Sex: Male

DRUGS (4)
  1. ALBUMIN HUMAN [Suspect]
     Active Substance: ALBUMIN HUMAN
     Indication: Product used for unknown indication
     Dosage: UNK
     Route: 042
  2. ALBUMIN HUMAN [Suspect]
     Active Substance: ALBUMIN HUMAN
     Indication: Allergy test
     Dosage: UNK
     Route: 061
  3. ALBUMIN HUMAN [Suspect]
     Active Substance: ALBUMIN HUMAN
     Indication: Skin test
     Dosage: 250 MILLILITER
     Route: 042
  4. ALBUMIN HUMAN [Suspect]
     Active Substance: ALBUMIN HUMAN
     Indication: Skin test
     Dosage: UNK
     Route: 023

REACTIONS (5)
  - Hypotension [Unknown]
  - Type I hypersensitivity [Unknown]
  - Urticaria [Unknown]
  - Off label use [Unknown]
  - Hypersensitivity [Unknown]
